FAERS Safety Report 9669157 (Version 4)
Quarter: 2014Q1

REPORT INFORMATION
  Report Type: Spontaneous
  Country: JP (occurrence: JP)
  Receive Date: 20131105
  Receipt Date: 20140224
  Transmission Date: 20141002
  Serious: Yes (Life-Threatening, Hospitalization)
  Sender: FDA-Public Use
  Company Number: JP-ELI_LILLY_AND_COMPANY-JP201310007592

PATIENT
  Age: 79 Year
  Sex: Male
  Weight: 62 kg

DRUGS (8)
  1. ALIMTA [Suspect]
     Indication: LUNG ADENOCARCINOMA STAGE IV
     Dosage: 800 MG, OTHER
     Route: 042
     Dates: start: 20130111, end: 20130814
  2. SALMETEROL/FLUTICASONPROPIONAAT [Concomitant]
     Dosage: UNK
     Route: 055
     Dates: start: 2009
  3. SPIRIVA [Concomitant]
     Dosage: UNK
     Route: 055
     Dates: start: 2009
  4. UNIPHYL [Concomitant]
     Dosage: UNK
     Route: 048
     Dates: start: 2009
  5. PREMINENT [Concomitant]
     Route: 048
  6. AMLODIN [Concomitant]
     Dosage: UNK
     Route: 048
  7. PANVITAN                           /00466101/ [Concomitant]
     Dosage: UNK
     Route: 048
     Dates: start: 20120924, end: 20130916
  8. FRESMIN S [Concomitant]
     Dosage: 1000 UG, UNK
     Route: 030
     Dates: start: 20120924, end: 20130814

REACTIONS (2)
  - Nephrotic syndrome [Not Recovered/Not Resolved]
  - Pollakiuria [Unknown]
